FAERS Safety Report 7028982-2 (Version None)
Quarter: 2010Q4

REPORT INFORMATION
  Report Type: 
  Country: None (occurrence: None)
  Receive Date: 20101005
  Receipt Date: 20100929
  Transmission Date: 20110411
  Serious: Yes (Hospitalization)
  Sender: FDA-Public Use
  Company Number: A0836049A

PATIENT
  Age: 53 Year
  Sex: Female
  Weight: 110 kg

DRUGS (4)
  1. AVANDIA [Suspect]
     Dosage: 8MG PER DAY
     Route: 048
     Dates: start: 20050425, end: 20070816
  2. METFORMIN [Concomitant]
  3. LISINOPRIL [Concomitant]
  4. PRAVACHOL [Concomitant]

REACTIONS (1)
  - CEREBROVASCULAR ACCIDENT [None]
